FAERS Safety Report 4322443-7 (Version None)
Quarter: 2004Q1

REPORT INFORMATION
  Report Type: 
  Country: None (occurrence: None)
  Receive Date: 20040319
  Receipt Date: 20040210
  Transmission Date: 20041129
  Serious: Yes (Death)
  Sender: FDA-Public Use
  Company Number: 10051114-03K24BN-1

PATIENT
  Sex: Male

DRUGS (1)
  1. FKB2323G - COMPOUND SODIUM LACTATE INJECTION, 500ML (=HARTMANN'S SOLUT [Suspect]

REACTIONS (1)
  - DEATH [None]
